FAERS Safety Report 21504310 (Version 2)
Quarter: 2023Q2

REPORT INFORMATION
  Report Type: Spontaneous
  Country: US (occurrence: US)
  Receive Date: 20221025
  Receipt Date: 20230504
  Transmission Date: 20230721
  Serious: No
  Sender: FDA-Public Use
  Company Number: US-Albireo AB-2022ALB000198

PATIENT
  Age: 14 Year
  Sex: Female

DRUGS (2)
  1. BYLVAY [Suspect]
     Active Substance: ODEVIXIBAT
     Indication: Progressive familial intrahepatic cholestasis
     Route: 048
     Dates: start: 20220630
  2. BYLVAY [Suspect]
     Active Substance: ODEVIXIBAT
     Route: 048

REACTIONS (1)
  - Product dose omission in error [Unknown]
